FAERS Safety Report 15505447 (Version 2)
Quarter: 2019Q2

REPORT INFORMATION
  Report Type: Not Available
  Country: US (occurrence: US)
  Receive Date: 20181016
  Receipt Date: 20190517
  Transmission Date: 20190711
  Serious: No
  Sender: FDA-Public Use
  Company Number: US-NEUROCRINE BIOSCIENCES INC.-2018NBI02966

PATIENT
  Sex: Male

DRUGS (1)
  1. INGREZZA [Suspect]
     Active Substance: VALBENAZINE
     Indication: TARDIVE DYSKINESIA
     Route: 048
     Dates: start: 20180208, end: 20180926

REACTIONS (3)
  - Swollen tongue [Recovered/Resolved]
  - Tardive dyskinesia [Recovered/Resolved]
  - Therapeutic product effect decreased [None]

NARRATIVE: CASE EVENT DATE: 2018
